FAERS Safety Report 14196766 (Version 1)
Quarter: 2017Q4

REPORT INFORMATION
  Report Type: Report from Study
  Country: CA (occurrence: CA)
  Receive Date: 20171116
  Receipt Date: 20171116
  Transmission Date: 20180321
  Serious: Yes (Other)
  Sender: FDA-Public Use
  Company Number: CA-GLAXOSMITHKLINE-CA2017GSK174955

PATIENT
  Sex: Male

DRUGS (2)
  1. MEPOLIZUMAB [Suspect]
     Active Substance: MEPOLIZUMAB
     Indication: ASTHMA
     Dosage: 100 MG, Z
     Route: 042
     Dates: start: 20170531
  2. PREDNISONE. [Concomitant]
     Active Substance: PREDNISONE
     Indication: PULMONARY CONGESTION
     Dosage: 5 MG, UNK

REACTIONS (1)
  - Pulmonary congestion [Recovering/Resolving]
